FAERS Safety Report 5490520-3 (Version None)
Quarter: 2007Q4

REPORT INFORMATION
  Report Type: 
  Country: None (occurrence: None)
  Receive Date: 20071019
  Receipt Date: 20071017
  Transmission Date: 20080405
  Serious: Yes (Hospitalization, Other)
  Sender: FDA-Public Use
  Company Number: NL-ABBOTT-07P-114-0376255-00

PATIENT
  Sex: Female
  Weight: 75 kg

DRUGS (5)
  1. HUMIRA [Suspect]
     Indication: RHEUMATOID ARTHRITIS
     Dates: start: 20030501, end: 20050101
  2. HUMIRA [Suspect]
     Route: 058
     Dates: start: 20060101, end: 20070314
  3. PREDNISOLONE [Concomitant]
     Indication: RHEUMATOID ARTHRITIS
     Route: 048
     Dates: start: 20060419
  4. NAPROXEN [Concomitant]
     Indication: DRUG USE FOR UNKNOWN INDICATION
     Route: 048
     Dates: start: 20010101
  5. ALENDRONINE ACID PCH [Concomitant]
     Indication: DRUG USE FOR UNKNOWN INDICATION
     Route: 048
     Dates: start: 20050101

REACTIONS (10)
  - ARTHRITIS BACTERIAL [None]
  - BONE SCAN ABNORMAL [None]
  - CHOLELITHIASIS [None]
  - COLITIS [None]
  - LISTERIOSIS [None]
  - MALAISE [None]
  - NAUSEA [None]
  - OSTEOPOROSIS [None]
  - SKIN CANDIDA [None]
  - SPINAL FRACTURE [None]
